FAERS Safety Report 18661157 (Version 1)
Quarter: 2020Q4

REPORT INFORMATION
  Report Type: Spontaneous
  Country: US (occurrence: US)
  Receive Date: 20201224
  Receipt Date: 20201224
  Transmission Date: 20210114
  Serious: No
  Sender: FDA-Public Use
  Company Number: US-RECORDATI RARE DISEASES-2103463

PATIENT
  Age: 64 Year
  Sex: Female

DRUGS (1)
  1. ISTURISA [Suspect]
     Active Substance: OSILODROSTAT PHOSPHATE
     Indication: PRODUCT USED FOR UNKNOWN INDICATION
     Dates: start: 20201003

REACTIONS (13)
  - Fatigue [Unknown]
  - Flatulence [Unknown]
  - Muscle spasms [Recovering/Resolving]
  - Neuralgia [Unknown]
  - Abdominal distension [Unknown]
  - Nausea [Unknown]
  - Gingival discomfort [Recovered/Resolved]
  - Headache [Unknown]
  - Pain threshold decreased [Unknown]
  - Pain in jaw [Recovered/Resolved]
  - Neck pain [Unknown]
  - Eructation [Unknown]
  - Gingival pain [Recovered/Resolved]

NARRATIVE: CASE EVENT DATE: 202010
